FAERS Safety Report 13355979 (Version 2)
Quarter: 2017Q1

REPORT INFORMATION
  Report Type: Spontaneous
  Country: US (occurrence: US)
  Receive Date: 20170321
  Receipt Date: 20170324
  Transmission Date: 20170429
  Serious: Yes (Other)
  Sender: FDA-Public Use
  Company Number: US-ASTRAZENECA-2017SE28465

PATIENT
  Sex: Female
  Weight: 81.6 kg

DRUGS (4)
  1. LANTUS [Concomitant]
     Active Substance: INSULIN GLARGINE
     Indication: DIABETES MELLITUS
     Dosage: TWICE A DAY
  2. BYDUREON [Suspect]
     Active Substance: EXENATIDE
     Route: 058
     Dates: start: 201702
  3. ESCITALOPRAM [Concomitant]
     Active Substance: ESCITALOPRAM OXALATE
     Indication: DEPRESSION
  4. LANTUS [Concomitant]
     Active Substance: INSULIN GLARGINE
     Indication: DIABETES MELLITUS
     Dosage: TAKES 25 TO 45 UNITS AT NIGHT

REACTIONS (4)
  - Device issue [Unknown]
  - Blood glucose increased [Unknown]
  - Injection site pain [Unknown]
  - Circumstance or information capable of leading to medication error [Unknown]
